FAERS Safety Report 15575570 (Version 2)
Quarter: 2019Q1

REPORT INFORMATION
  Report Type: Spontaneous
  Country: JP (occurrence: JP)
  Receive Date: 20181101
  Receipt Date: 20190114
  Transmission Date: 20190417
  Serious: Yes (Hospitalization, Other)
  Sender: FDA-Public Use
  Company Number: JP-PFIZER INC-2018438929

PATIENT
  Age: 73 Year
  Sex: Male

DRUGS (9)
  1. METHOTREXATE SODIUM. [Concomitant]
     Active Substance: METHOTREXATE SODIUM
     Dosage: 2 MG, 2X/DAY
     Route: 048
     Dates: start: 20160119, end: 20180829
  2. MIGLITOL. [Concomitant]
     Active Substance: MIGLITOL
     Dosage: 50 MG, 3X/DAY
     Route: 048
     Dates: start: 20180424, end: 20181023
  3. FOLIAMIN [Concomitant]
     Active Substance: FOLIC ACID
     Dosage: 5 MG, WEEKLY
     Route: 048
     Dates: start: 20160119
  4. TELMISARTAN. [Concomitant]
     Active Substance: TELMISARTAN
     Dosage: 40 MG, 1X/DAY
     Route: 048
     Dates: start: 20180123
  5. PIOGLITAZONE. [Concomitant]
     Active Substance: PIOGLITAZONE
     Dosage: 15 MG, 1X/DAY
     Route: 048
     Dates: start: 20170425, end: 20181023
  6. ENBREL [Suspect]
     Active Substance: ETANERCEPT
     Indication: RHEUMATOID ARTHRITIS
     Dosage: 50 MG, WEEKLY
     Route: 058
     Dates: start: 20160119, end: 20180829
  7. METHOTREXATE SODIUM. [Concomitant]
     Active Substance: METHOTREXATE SODIUM
     Dosage: 4 MG, 2X/DAY
     Route: 048
     Dates: start: 20181023
  8. MIGLITOL. [Concomitant]
     Active Substance: MIGLITOL
     Dosage: 75 MG, 3X/DAY
     Route: 048
     Dates: start: 20181023
  9. MICAMLO [Concomitant]
     Active Substance: AMLODIPINE BESYLATE\TELMISARTAN
     Dosage: 1 DF, 1X/DAY
     Route: 048
     Dates: start: 20170124, end: 20180123

REACTIONS (1)
  - Rectal cancer [Unknown]

NARRATIVE: CASE EVENT DATE: 2018
